FAERS Safety Report 11497088 (Version 1)
Quarter: 2015Q3

REPORT INFORMATION
  Report Type: Spontaneous
  Country: US (occurrence: US)
  Receive Date: 20150911
  Receipt Date: 20150911
  Transmission Date: 20151125
  Serious: No
  Sender: FDA-Public Use
  Company Number: US-BAYER-2015-419252

PATIENT
  Age: 85 Year
  Sex: Male
  Weight: 70.3 kg

DRUGS (1)
  1. OXYTROL FOR WOMEN [Suspect]
     Active Substance: OXYBUTYNIN
     Indication: HYPERTONIC BLADDER
     Dosage: 1 DF, EVERY FOUR DAYS
     Route: 061
     Dates: start: 20150905

REACTIONS (2)
  - Thirst [Unknown]
  - Off label use [None]

NARRATIVE: CASE EVENT DATE: 20150905
